FAERS Safety Report 13981656 (Version 1)
Quarter: 2017Q3

REPORT INFORMATION
  Report Type: Spontaneous
  Country: US (occurrence: US)
  Receive Date: 20170918
  Receipt Date: 20170918
  Transmission Date: 20171128
  Serious: No
  Sender: FDA-Public Use
  Company Number: US-BION-005003

PATIENT
  Age: 55 Year
  Sex: Female
  Weight: 58.97 kg

DRUGS (2)
  1. CETIRIZINE/CETIRIZINE HYDROCHLORIDE [Suspect]
     Active Substance: CETIRIZINE HYDROCHLORIDE
     Indication: URTICARIA
     Dosage: 1 DF 2 TO 3 TIMES A DAY
     Route: 048
  2. RANITIDINE. [Concomitant]
     Active Substance: RANITIDINE
     Dosage: 4 TO 5 DF PER DAY

REACTIONS (2)
  - Product use in unapproved indication [Unknown]
  - Inappropriate schedule of drug administration [Unknown]
